FAERS Safety Report 9616334 (Version 1)
Quarter: 2013Q4

REPORT INFORMATION
  Report Type: Spontaneous
  Country: US (occurrence: US)
  Receive Date: 20131011
  Receipt Date: 20131011
  Transmission Date: 20140711
  Serious: No
  Sender: FDA-Public Use
  Company Number: US-BAYER-2013-122989

PATIENT
  Age: 57 Year
  Sex: Female
  Weight: 100 kg

DRUGS (1)
  1. ALEVE CAPLET [Suspect]
     Dosage: 4 DF, UNK
     Route: 048
     Dates: start: 20131008, end: 20131008

REACTIONS (1)
  - Extra dose administered [None]
